FAERS Safety Report 10050532 (Version 1)
Quarter: 2014Q2

REPORT INFORMATION
  Report Type: Spontaneous
  Country: US (occurrence: US)
  Receive Date: 20140401
  Receipt Date: 20140401
  Transmission Date: 20141212
  Serious: No
  Sender: FDA-Public Use
  Company Number: US-ASTRAZENECA-2013SE82719

PATIENT
  Age: 51 Year
  Sex: Male
  Weight: 186 kg

DRUGS (6)
  1. NEXIUM [Suspect]
     Indication: GASTROOESOPHAGEAL REFLUX DISEASE
     Route: 048
     Dates: start: 2008
  2. PEGASIS INTERFERON [Concomitant]
     Indication: HEPATITIS C
     Dosage: NOT REPORTED WEEK
     Dates: start: 201307
  3. NAPROXIN [Concomitant]
     Indication: PAIN IN EXTREMITY
  4. GABAPENTIN [Concomitant]
     Indication: CARPAL TUNNEL SYNDROME
     Dates: start: 2008
  5. TRAZADONE [Concomitant]
     Indication: SLEEP DISORDER
     Dates: start: 2007
  6. TRAMADOL [Concomitant]
     Indication: PAIN
     Dosage: 50MG NR
     Dates: start: 2008

REACTIONS (1)
  - Drug screen positive [Unknown]
